FAERS Safety Report 19749242 (Version 1)
Quarter: 2021Q3

REPORT INFORMATION
  Report Type: Spontaneous
  Country: US (occurrence: US)
  Receive Date: 20210825
  Receipt Date: 20210825
  Transmission Date: 20211014
  Serious: No
  Sender: FDA-Public Use
  Company Number: None

PATIENT
  Age: 9 Year
  Sex: Female
  Weight: 45.9 kg

DRUGS (2)
  1. DIMETAPP COLD AND ALLERGY [Suspect]
     Active Substance: BROMPHENIRAMINE MALEATE\PHENYLEPHRINE HYDROCHLORIDE
     Indication: HYPERSENSITIVITY
     Route: 048
     Dates: start: 20210711
  2. FLINT STONE GUMMY VITAMINS [Concomitant]

REACTIONS (2)
  - Epistaxis [None]
  - Anaemia [None]

NARRATIVE: CASE EVENT DATE: 20210824
